FAERS Safety Report 8545262-4 (Version None)
Quarter: 2012Q3

REPORT INFORMATION
  Report Type: 
  Country: None (occurrence: None)
  Receive Date: 20120719
  Receipt Date: 20120719
  Transmission Date: 20120928
  Serious: Yes (Other)
  Sender: FDA-Public Use
  Company Number: None

PATIENT
  Age: 75 Year
  Sex: Male
  Weight: 122.7 kg

DRUGS (2)
  1. ROSIGLITAZONE [Suspect]
     Indication: DIABETES MELLITUS
     Dosage: 8 MG EVERY DAY PO
     Route: 048
     Dates: start: 20031211, end: 20041211
  2. PIOGLITAZONE [Suspect]
     Indication: DIABETES MELLITUS
     Dosage: 30 MG EVERY DAY PO
     Route: 048
     Dates: start: 20120217, end: 20120511

REACTIONS (1)
  - BLADDER TRANSITIONAL CELL CARCINOMA [None]
